FAERS Safety Report 5045525-3 (Version None)
Quarter: 2006Q2

REPORT INFORMATION
  Report Type: 
  Country: None (occurrence: None)
  Receive Date: 20060601
  Receipt Date: 20060306
  Transmission Date: 20061013
  Serious: No
  Sender: FDA-Public Use
  Company Number: 2006-BP-01165BP

PATIENT
  Age: 56 Year
  Sex: Female
  Weight: 77.27 kg

DRUGS (5)
  1. SPIRIVA [Suspect]
     Indication: BRONCHITIS CHRONIC
     Dosage: 18 MCG (18 MCG 1 IN 1 D) IH
     Route: 055
     Dates: start: 20060120, end: 20060120
  2. ALBUTEROL [Concomitant]
  3. ADVAIR (SERETIDE / 01420901/ ) [Concomitant]
  4. ZYRTEC [Concomitant]
  5. SYNTHROID [Concomitant]

REACTIONS (1)
  - RESPIRATORY DISTRESS [None]
